FAERS Safety Report 23253001 (Version 1)
Quarter: 2023Q4

REPORT INFORMATION
  Report Type: Spontaneous
  Country: US (occurrence: US)
  Receive Date: 20231201
  Receipt Date: 20231201
  Transmission Date: 20240110
  Serious: No
  Sender: FDA-Public Use
  Company Number: US-SANDOZ-SDZ2023US061953

PATIENT
  Sex: Female
  Weight: 18.6 kg

DRUGS (4)
  1. FOCALIN [Suspect]
     Active Substance: DEXMETHYLPHENIDATE HYDROCHLORIDE
     Indication: Attention deficit hyperactivity disorder
     Dosage: 10 MG, QD
     Route: 048
  2. FOCALIN [Suspect]
     Active Substance: DEXMETHYLPHENIDATE HYDROCHLORIDE
     Indication: Smith-Magenis syndrome
     Dosage: 5 MG, QD
     Route: 048
     Dates: start: 202310
  3. HETLIOZ LQ [Suspect]
     Active Substance: TASIMELTEON
     Indication: Smith-Magenis syndrome
     Dosage: 3.5 MG, QHS
     Route: 048
     Dates: start: 202310
  4. HETLIOZ LQ [Suspect]
     Active Substance: TASIMELTEON
     Indication: Attention deficit hyperactivity disorder

REACTIONS (3)
  - Behaviour disorder [Unknown]
  - Depressed mood [Unknown]
  - Ear infection [Unknown]
